FAERS Safety Report 16653112 (Version 3)
Quarter: 2020Q3

REPORT INFORMATION
  Report Type: Report from Study
  Country: JP (occurrence: JP)
  Receive Date: 20190731
  Receipt Date: 20200915
  Transmission Date: 20201102
  Serious: Yes (Hospitalization)
  Sender: FDA-Public Use
  Company Number: JP-EISAI MEDICAL RESEARCH-EC-2019-059661

PATIENT
  Age: 66 Year
  Sex: Female
  Weight: 41 kg

DRUGS (17)
  1. HALAVEN [Suspect]
     Active Substance: ERIBULIN MESYLATE
     Route: 042
     Dates: start: 20191031, end: 20200123
  2. PERTUZUMAB. [Suspect]
     Active Substance: PERTUZUMAB
     Indication: BREAST CANCER
     Route: 041
     Dates: start: 20190709, end: 20200123
  3. BROTIZOLAM OD [Concomitant]
     Active Substance: BROTIZOLAM
     Indication: INSOMNIA
     Route: 048
     Dates: start: 20190710, end: 20200601
  4. PRIMPERAN [Concomitant]
     Active Substance: METOCLOPRAMIDE HYDROCHLORIDE
     Indication: NAUSEA
     Route: 048
     Dates: start: 20190717, end: 20190806
  5. MAGNESIUM OXIDE. [Concomitant]
     Active Substance: MAGNESIUM OXIDE
     Indication: CONSTIPATION
     Route: 048
     Dates: start: 20190806, end: 20200601
  6. PICOSULFATE NA [Concomitant]
     Active Substance: SODIUM PICOSULFATE
     Indication: CONSTIPATION
     Route: 048
     Dates: start: 20190725, end: 20200601
  7. AMLODIPINE [Concomitant]
     Active Substance: AMLODIPINE BESYLATE
     Indication: HYPERTENSION
     Route: 048
     Dates: start: 20190710, end: 20200601
  8. LOXONIN [Concomitant]
     Active Substance: LOXOPROFEN SODIUM
     Indication: BACK PAIN
     Route: 048
     Dates: start: 20190626, end: 20190717
  9. DENOTAS [Concomitant]
     Active Substance: CALCIUM CARBONATE\CHOLECALCIFEROL\MAGNESIUM CARBONATE
     Indication: PROPHYLAXIS
     Route: 048
     Dates: start: 20190730, end: 20200601
  10. LANSOPRAZOLE. [Concomitant]
     Active Substance: LANSOPRAZOLE
     Indication: ABDOMINAL PAIN UPPER
     Route: 048
     Dates: start: 20190717, end: 20200601
  11. ROZEX (METRONIDAZOLE) [Concomitant]
     Active Substance: METRONIDAZOLE
     Indication: PROPHYLAXIS
     Route: 065
     Dates: start: 20190626, end: 20200601
  12. LOXONIN [Concomitant]
     Active Substance: LOXOPROFEN SODIUM
     Route: 061
     Dates: start: 20190717
  13. ASTOMIN [Concomitant]
     Active Substance: DIMEMORFAN
     Indication: COUGH
     Route: 048
     Dates: start: 20190717, end: 20190806
  14. HALAVEN [Suspect]
     Active Substance: ERIBULIN MESYLATE
     Indication: BREAST CANCER
     Route: 042
     Dates: start: 20190709, end: 20190731
  15. CALONAL [Concomitant]
     Active Substance: ACETAMINOPHEN
     Indication: INSOMNIA
     Route: 048
     Dates: start: 20190717, end: 20200601
  16. TRASTUZUMAB. [Suspect]
     Active Substance: TRASTUZUMAB
     Indication: BREAST CANCER
     Route: 041
     Dates: start: 20190709, end: 20200123
  17. RANMARK [Concomitant]
     Active Substance: DENOSUMAB
     Indication: METASTASES TO BONE
     Route: 058
     Dates: start: 20200731

REACTIONS (1)
  - Vomiting [Recovered/Resolved]

NARRATIVE: CASE EVENT DATE: 20190720
